FAERS Safety Report 17843100 (Version 3)
Quarter: 2020Q3

REPORT INFORMATION
  Report Type: Report from Study
  Country: HK (occurrence: HK)
  Receive Date: 20200530
  Receipt Date: 20200715
  Transmission Date: 20201103
  Serious: Yes (Hospitalization, Other)
  Sender: FDA-Public Use
  Company Number: PHHY2015HK006558

PATIENT
  Age: 46 Year
  Sex: Female

DRUGS (4)
  1. GILENYA [Suspect]
     Active Substance: FINGOLIMOD HYDROCHLORIDE
     Dosage: 0.5 MG, QD
     Route: 048
     Dates: start: 20170115, end: 20171031
  2. UBRETID [Concomitant]
     Active Substance: DISTIGMINE BROMIDE
     Indication: URINARY TRACT DISORDER
     Dosage: 10 MG, OM
     Route: 048
     Dates: start: 20121211
  3. GILENYA [Suspect]
     Active Substance: FINGOLIMOD HYDROCHLORIDE
     Dosage: 0.5 MG, QD
     Route: 048
     Dates: start: 20171115
  4. GILENYA [Suspect]
     Active Substance: FINGOLIMOD HYDROCHLORIDE
     Indication: RELAPSING MULTIPLE SCLEROSIS
     Dosage: 0.5 MG, QD
     Route: 048
     Dates: start: 20140703, end: 20170112

REACTIONS (23)
  - Swelling of eyelid [Recovered/Resolved]
  - Vision blurred [Recovered/Resolved]
  - Dizziness [Not Recovered/Not Resolved]
  - Neuralgia [Recovered/Resolved]
  - Eye pain [Recovered/Resolved]
  - Hypertension [Recovered/Resolved with Sequelae]
  - Iron deficiency anaemia [Recovered/Resolved]
  - Lymphocyte count decreased [Recovered/Resolved]
  - Pain of skin [Recovered/Resolved]
  - Skin lesion [Recovered/Resolved]
  - Headache [Recovered/Resolved with Sequelae]
  - Haemoglobin decreased [Recovered/Resolved]
  - Ophthalmic herpes zoster [Recovered/Resolved]
  - Muscular weakness [Recovered/Resolved]
  - Paresis [Recovered/Resolved]
  - Multiple sclerosis relapse [Recovered/Resolved]
  - Insomnia [Recovered/Resolved]
  - Hypoaesthesia [Recovered/Resolved]
  - Ataxia [Recovered/Resolved]
  - Headache [Recovered/Resolved]
  - Blister [Recovered/Resolved]
  - Multiple sclerosis [Recovered/Resolved with Sequelae]
  - Palpitations [Recovered/Resolved]

NARRATIVE: CASE EVENT DATE: 20140817
